FAERS Safety Report 5832337-3 (Version None)
Quarter: 2008Q3

REPORT INFORMATION
  Report Type: 
  Country: None (occurrence: None)
  Receive Date: 20080804
  Receipt Date: 20080730
  Transmission Date: 20090109
  Serious: Yes (Other)
  Sender: FDA-Public Use
  Company Number: B0531200A

PATIENT
  Sex: Male

DRUGS (2)
  1. FLUTIDE DISKUS [Suspect]
     Indication: DRUG USE FOR UNKNOWN INDICATION
     Dosage: 400MCG TWICE PER DAY
     Route: 055
     Dates: start: 20030101
  2. FLUTIDE DISKUS [Suspect]
     Dosage: 200MCG TWICE PER DAY
     Route: 055

REACTIONS (1)
  - SKIN ATROPHY [None]
